FAERS Safety Report 17351011 (Version 10)
Quarter: 2022Q4

REPORT INFORMATION
  Report Type: Report from Study
  Country: JP (occurrence: JP)
  Receive Date: 20200130
  Receipt Date: 20221008
  Transmission Date: 20230112
  Serious: Yes (Hospitalization)
  Sender: FDA-Public Use
  Company Number: NVSC2020JP018338

PATIENT
  Age: 47 Year
  Sex: Female
  Weight: 64.2 kg

DRUGS (36)
  1. SPARTALIZUMAB [Suspect]
     Active Substance: SPARTALIZUMAB
     Indication: Triple negative breast cancer
     Dosage: 400 MG, Q4W
     Route: 042
     Dates: start: 20191213, end: 20191213
  2. IERAMILIMAB [Suspect]
     Active Substance: IERAMILIMAB
     Indication: Triple negative breast cancer
     Dosage: 600 MG, Q4W
     Route: 065
     Dates: start: 20191213, end: 20191213
  3. ILARIS [Suspect]
     Active Substance: CANAKINUMAB
     Indication: Triple negative breast cancer
     Dosage: 600 MG, Q2MO
     Route: 058
     Dates: start: 20191213, end: 20191213
  4. CEFTRIAXONE SODIUM [Concomitant]
     Active Substance: CEFTRIAXONE SODIUM
     Indication: Pneumonia bacterial
     Dosage: UNK
     Route: 065
     Dates: start: 20200107, end: 20200119
  5. MORPHINE HYDROCHLORIDE [Concomitant]
     Active Substance: MORPHINE HYDROCHLORIDE
     Indication: Tumour pain
     Dosage: UNK
     Route: 065
     Dates: start: 20191213
  6. HEPARINOID [Concomitant]
     Indication: Pruritus
     Dosage: UNK
     Route: 065
     Dates: start: 20190416
  7. DIPHENHYDRAMINE [Concomitant]
     Active Substance: DIPHENHYDRAMINE
     Indication: Pruritus
     Dosage: UNK
     Route: 065
     Dates: start: 20191101
  8. LOXOPROFEN SODIUM DIHYDRATE [Concomitant]
     Active Substance: LOXOPROFEN SODIUM DIHYDRATE
     Indication: Tumour pain
     Dosage: UNK
     Route: 065
     Dates: start: 20191220
  9. ACETAMINOPHEN [Concomitant]
     Active Substance: ACETAMINOPHEN
     Indication: Hydronephrosis
     Dosage: UNK
     Route: 065
     Dates: start: 20200118, end: 20200118
  10. ACETAMINOPHEN [Concomitant]
     Active Substance: ACETAMINOPHEN
     Dosage: UNK
     Route: 065
     Dates: start: 20200118, end: 20200121
  11. ACETAMINOPHEN [Concomitant]
     Active Substance: ACETAMINOPHEN
     Dosage: UNK
     Route: 065
     Dates: start: 20200122
  12. MAGNESIUM OXIDE [Concomitant]
     Active Substance: MAGNESIUM OXIDE
     Indication: Constipation
     Dosage: UNK
     Route: 065
     Dates: start: 20190409
  13. CALCIUM GLUCONATE [Concomitant]
     Active Substance: CALCIUM GLUCONATE
     Indication: Hydronephrosis
     Dosage: UNK
     Route: 065
     Dates: start: 20200110, end: 20200110
  14. CALCIUM GLUCONATE [Concomitant]
     Active Substance: CALCIUM GLUCONATE
     Indication: Prophylaxis
     Dosage: UNK
     Route: 065
     Dates: start: 20200111, end: 20200113
  15. CALCIUM GLUCONATE [Concomitant]
     Active Substance: CALCIUM GLUCONATE
     Dosage: UNK
     Route: 065
     Dates: start: 20200114, end: 20200114
  16. CALCIUM GLUCONATE [Concomitant]
     Active Substance: CALCIUM GLUCONATE
     Dosage: UNK
     Route: 065
     Dates: start: 20200122, end: 20200122
  17. DEXTROSE\SODIUM CHLORIDE\SODIUM LACTATE [Concomitant]
     Active Substance: DEXTROSE\SODIUM CHLORIDE\SODIUM LACTATE
     Indication: Fluid replacement
     Dosage: UNK
     Route: 065
     Dates: start: 20200115, end: 20200120
  18. DEXTROSE\SODIUM CHLORIDE\SODIUM LACTATE [Concomitant]
     Active Substance: DEXTROSE\SODIUM CHLORIDE\SODIUM LACTATE
     Dosage: UNK
     Route: 065
     Dates: start: 20200122, end: 20200124
  19. MOXIFLOXACIN HYDROCHLORIDE [Concomitant]
     Active Substance: MOXIFLOXACIN HYDROCHLORIDE
     Indication: Pneumonia bacterial
     Dosage: UNK
     Route: 065
     Dates: start: 20200120, end: 20200131
  20. PREDNISOLONE [Concomitant]
     Active Substance: PREDNISOLONE
     Indication: Hepatic function abnormal
     Dosage: UNK
     Route: 065
     Dates: start: 20200122, end: 20200128
  21. NALDEMEDINE TOSYLATE [Concomitant]
     Active Substance: NALDEMEDINE TOSYLATE
     Indication: Constipation
     Dosage: UNK
     Route: 065
     Dates: start: 20190507
  22. ALFACALCIDOL [Concomitant]
     Active Substance: ALFACALCIDOL
     Indication: Hydronephrosis
     Dosage: UNK
     Route: 065
     Dates: start: 20200118
  23. ALFACALCIDOL [Concomitant]
     Active Substance: ALFACALCIDOL
     Indication: Prophylaxis
  24. EDOXABAN TOSYLATE [Concomitant]
     Active Substance: EDOXABAN TOSYLATE
     Indication: Deep vein thrombosis
     Dosage: UNK
     Route: 065
     Dates: start: 20200115, end: 20200118
  25. EDOXABAN TOSYLATE [Concomitant]
     Active Substance: EDOXABAN TOSYLATE
     Dosage: UNK
     Route: 065
     Dates: start: 20200120, end: 20200128
  26. SCOPOLAMINE [Concomitant]
     Active Substance: SCOPOLAMINE
     Indication: Abdominal pain
     Dosage: UNK
     Route: 065
     Dates: start: 20200117
  27. INDOMETHACIN [Concomitant]
     Active Substance: INDOMETHACIN
     Indication: Tumour pain
     Dosage: UNK
     Route: 065
     Dates: start: 20200113
  28. CALCIUM CARBONATE\CHOLECALCIFEROL\MAGNESIUM CARBONATE [Concomitant]
     Active Substance: CALCIUM CARBONATE\CHOLECALCIFEROL\MAGNESIUM CARBONATE
     Indication: Metastasis
     Dosage: UNK
     Route: 065
     Dates: start: 20191112
  29. LANSOPRAZOLE [Concomitant]
     Active Substance: LANSOPRAZOLE
     Indication: Gastritis prophylaxis
     Dosage: UNK
     Route: 065
     Dates: start: 20200112
  30. CALCIUM LACTATE [Concomitant]
     Active Substance: CALCIUM LACTATE
     Indication: Hydronephrosis
     Dosage: UNK
     Route: 065
     Dates: start: 20200115
  31. BROMHEXINE HYDROCHLORIDE [Concomitant]
     Active Substance: BROMHEXINE HYDROCHLORIDE
     Indication: Pneumonia bacterial
     Dosage: UNK
     Route: 065
     Dates: start: 20200109, end: 20200120
  32. TIPEPIDINE HIBENZATE [Concomitant]
     Active Substance: TIPEPIDINE HIBENZATE
     Indication: Pneumonia bacterial
     Dosage: UNK
     Route: 065
     Dates: start: 20200109, end: 20200201
  33. CARBOCYSTEINE [Concomitant]
     Active Substance: CARBOCYSTEINE
     Indication: Pneumonia bacterial
     Dosage: UNK
     Route: 065
     Dates: start: 20200109, end: 20200201
  34. AZITHROMYCIN [Concomitant]
     Active Substance: AZITHROMYCIN
     Indication: Pneumonia bacterial
     Dosage: UNK
     Route: 065
     Dates: start: 20200107, end: 20200109
  35. MORPHINE SULFATE [Concomitant]
     Active Substance: MORPHINE SULFATE
     Indication: Tumour pain
     Dosage: UNK
     Route: 065
     Dates: start: 20190409
  36. SODIUM CHLORIDE [Concomitant]
     Active Substance: SODIUM CHLORIDE
     Indication: Fluid replacement
     Dosage: UNK
     Route: 065
     Dates: start: 20200107, end: 20200114

REACTIONS (1)
  - Rash maculo-papular [Recovering/Resolving]

NARRATIVE: CASE EVENT DATE: 20200122
